FAERS Safety Report 25176427 (Version 2)
Quarter: 2025Q2

REPORT INFORMATION
  Report Type: Spontaneous
  Country: US (occurrence: US)
  Receive Date: 20250409
  Receipt Date: 20250624
  Transmission Date: 20250717
  Serious: No
  Sender: BIOGEN
  Company Number: US-BIOGEN-2025BI01306897

PATIENT
  Sex: Male

DRUGS (1)
  1. TYSABRI [Suspect]
     Active Substance: NATALIZUMAB
     Indication: Multiple sclerosis
     Route: 050
     Dates: start: 20110808, end: 20120726

REACTIONS (6)
  - Drug ineffective [Unknown]
  - Illness [Unknown]
  - Nightmare [Unknown]
  - Swelling [Unknown]
  - Rash [Unknown]
  - Pyrexia [Unknown]
